FAERS Safety Report 9922377 (Version 1)
Quarter: 2014Q1

REPORT INFORMATION
  Report Type: Spontaneous
  Country: US (occurrence: None)
  Receive Date: 20140224
  Receipt Date: 20140224
  Transmission Date: 20141002
  Serious: Yes (Disabling, Other)
  Sender: FDA-Public Use
  Company Number: None

PATIENT
  Age: 63 Year
  Sex: Female
  Weight: 39.92 kg

DRUGS (2)
  1. BUPROP 24 XL [Suspect]
     Indication: DEPRESSION
     Route: 048
     Dates: start: 20140101, end: 20140223
  2. BUPROP 24 XL 300 MG PAR [Suspect]
     Indication: DEPRESSION
     Route: 048
     Dates: start: 20140101, end: 20140223

REACTIONS (6)
  - Depression [None]
  - Anxiety [None]
  - Insomnia [None]
  - Drug ineffective [None]
  - Product substitution issue [None]
  - Product quality issue [None]
